FAERS Safety Report 6390724-1 (Version None)
Quarter: 2009Q4

REPORT INFORMATION
  Report Type: 
  Country: None (occurrence: None)
  Receive Date: 20091006
  Receipt Date: 20090923
  Transmission Date: 20100525
  Serious: Yes (Other)
  Sender: FDA-Public Use
  Company Number: PHEH2009US11690

PATIENT
  Sex: Female
  Weight: 67.12 kg

DRUGS (5)
  1. RECLAST [Suspect]
     Indication: OSTEOPOROSIS
     Dosage: 5 MG, YEARLY
     Route: 042
     Dates: start: 20090903
  2. PLAVIX [Concomitant]
     Dosage: 75 MG, UNK
  3. LEVOTHYROXINE SODIUM [Concomitant]
  4. AMRIX [Concomitant]
  5. OSCAL [Concomitant]

REACTIONS (4)
  - ASTHENIA [None]
  - BALANCE DISORDER [None]
  - DIZZINESS [None]
  - SYNCOPE [None]
